FAERS Safety Report 6998768-3 (Version None)
Quarter: 2010Q3

REPORT INFORMATION
  Report Type: 
  Country: None (occurrence: None)
  Receive Date: 20100920
  Receipt Date: 20100611
  Transmission Date: 20110219
  Serious: No
  Sender: FDA-Public Use
  Company Number: US-ASTRAZENECA-2010SE27367

PATIENT
  Age: 46 Year
  Sex: Female
  Weight: 87.1 kg

DRUGS (1)
  1. SEROQUEL XR [Suspect]
     Route: 048

REACTIONS (4)
  - DRY MOUTH [None]
  - INCREASED APPETITE [None]
  - NASAL CONGESTION [None]
  - WEIGHT INCREASED [None]
